FAERS Safety Report 8791751 (Version 1)
Quarter: 2012Q4

REPORT INFORMATION
  Report Type: 
  Country: US (occurrence: US)
  Receive Date: 20120918
  Receipt Date: 20120918
  Transmission Date: 20130627
  Serious: Yes (Hospitalization)
  Sender: FDA-Public Use
  Company Number: US-BAYER-2012-096364

PATIENT
  Age: 47 Year
  Sex: Female
  Weight: 89.34 kg

DRUGS (18)
  1. YASMIN [Suspect]
     Indication: CONTRACEPTION
  2. PREVACID [Concomitant]
     Dosage: UNK
     Dates: start: 20041017
  3. VIOXX [Concomitant]
     Dosage: UNK
     Dates: start: 20041017
  4. ULTRACET [Concomitant]
     Indication: BACK PAIN
     Dosage: 37.5/325mg ;
     Dates: start: 20041017
  5. ADVAIR [Concomitant]
     Dosage: 1 puff ; BID
     Dates: start: 20041017
  6. ENTEX [Concomitant]
     Dosage: 1 tablet ; BID prn
     Dates: start: 20041017
  7. KLONOPIN [Concomitant]
     Indication: MENTAL DISORDER
     Dosage: 2.5 mg, UNK
     Dates: start: 20041017
  8. SERZONE [Concomitant]
     Indication: MENTAL DISORDER
     Dosage: 100 mg, BID
     Dates: start: 20041017
  9. SEROQUEL [Concomitant]
     Dosage: 25 mg, morning
     Dates: start: 20041017
  10. SEROQUEL [Concomitant]
     Dosage: 50 mg, afternoon
     Dates: start: 20041017
  11. SEROQUEL [Concomitant]
     Dosage: 200 mg, HS
     Dates: start: 20041017
  12. AZMACORT [Concomitant]
     Dosage: 4 puffs ;  BID
     Dates: start: 20041017
  13. ALBUTEROL [Concomitant]
     Dosage: UNK; PRN
     Dates: start: 20041017
  14. NORTRIPTYLINE [Concomitant]
     Indication: MENTAL DISORDER
     Dosage: 150 mg, HS
     Dates: start: 20041017
  15. LAMICTAL [Concomitant]
  16. PROTONIX [Concomitant]
     Indication: GASTROOESOPHAGEAL REFLUX PROPHYLAXIS
  17. PROTONIX [Concomitant]
     Indication: PROPHYLAXIS
  18. NASAL STEROID SPRAY [Concomitant]

REACTIONS (2)
  - Pulmonary embolism [None]
  - Deep vein thrombosis [None]
